FAERS Safety Report 19817407 (Version 10)
Quarter: 2022Q2

REPORT INFORMATION
  Report Type: Spontaneous
  Country: US (occurrence: US)
  Receive Date: 20210911
  Receipt Date: 20220528
  Transmission Date: 20220720
  Serious: Yes (Hospitalization)
  Sender: FDA-Public Use
  Company Number: US-ALXN-A202110026

PATIENT
  Age: 75 Year
  Sex: Male

DRUGS (1)
  1. SOLIRIS [Suspect]
     Active Substance: ECULIZUMAB
     Indication: Myasthenia gravis
     Dosage: UNK
     Route: 065

REACTIONS (8)
  - Mechanical ventilation [Recovering/Resolving]
  - Oxygen saturation decreased [Unknown]
  - Infection [Unknown]
  - Infusion site vesicles [Unknown]
  - Swelling [Unknown]
  - Back pain [Unknown]
  - Asthenia [Unknown]
  - Fatigue [Recovering/Resolving]

NARRATIVE: CASE EVENT DATE: 20210901
